FAERS Safety Report 25881940 (Version 4)
Quarter: 2025Q4

REPORT INFORMATION
  Report Type: Report from Study
  Country: US (occurrence: US)
  Receive Date: 20251005
  Receipt Date: 20251211
  Transmission Date: 20260118
  Serious: Yes (Hospitalization, Other)
  Sender: ABBVIE
  Company Number: US-ABBVIE-6482881

PATIENT
  Age: 23 Year
  Sex: Male
  Weight: 97.522 kg

DRUGS (4)
  1. RINVOQ [Suspect]
     Active Substance: UPADACITINIB
     Indication: Colitis ulcerative
     Dosage: FORM STRENGTH: 30 MILLIGRAM
     Route: 048
     Dates: start: 20250121, end: 202510
  2. RINVOQ [Suspect]
     Active Substance: UPADACITINIB
     Indication: Colitis ulcerative
     Dosage: FORM STRENGTH: 45 MILLIGRAM?LAST ADMIN DATE 2025
     Route: 048
     Dates: start: 202510
  3. RINVOQ [Suspect]
     Active Substance: UPADACITINIB
     Indication: Colitis ulcerative
     Route: 048
  4. RINVOQ [Suspect]
     Active Substance: UPADACITINIB
     Indication: Colitis ulcerative
     Dosage: FORM STRENGTH: 30 MILLIGRAM?DOSE REDUCED
     Route: 048

REACTIONS (3)
  - Large intestine polyp [Recovering/Resolving]
  - Anaemia [Unknown]
  - Volume blood decreased [Recovered/Resolved]

NARRATIVE: CASE EVENT DATE: 20250101
